FAERS Safety Report 23809016 (Version 4)
Quarter: 2024Q3

REPORT INFORMATION
  Report Type: Spontaneous
  Country: JP (occurrence: JP)
  Receive Date: 20240502
  Receipt Date: 20240807
  Transmission Date: 20241017
  Serious: Yes (Hospitalization)
  Sender: TAIHO ONCOLOGY INC
  Company Number: JP-TAIHOP-2024-004001

PATIENT
  Age: 70 Year
  Sex: Male

DRUGS (5)
  1. LONSURF [Suspect]
     Active Substance: TIPIRACIL HYDROCHLORIDE\TRIFLURIDINE
     Indication: Colorectal cancer
     Dosage: CYCLE 1?DAILY DOSE: 90 MILLIGRAM(S)
     Route: 048
  2. LONSURF [Suspect]
     Active Substance: TIPIRACIL HYDROCHLORIDE\TRIFLURIDINE
     Dosage: CYCLE UNKNOWN.?DAILY DOSE: 30 MILLIGRAM(S)
     Route: 048
     Dates: start: 20240422
  3. LONSURF [Suspect]
     Active Substance: TIPIRACIL HYDROCHLORIDE\TRIFLURIDINE
     Dosage: CYCLE UNKNOWN.?DAILY DOSE: 60 MILLIGRAM(S)
     Route: 048
  4. LONSURF [Suspect]
     Active Substance: TIPIRACIL HYDROCHLORIDE\TRIFLURIDINE
     Dosage: CYCLE UNKNOWN.?DAILY DOSE: 80 MILLIGRAM(S)
     Route: 048
  5. BEVACIZUMAB [Concomitant]
     Active Substance: BEVACIZUMAB
     Indication: Colorectal cancer

REACTIONS (7)
  - Tremor [Recovering/Resolving]
  - Skin exfoliation [Recovering/Resolving]
  - Headache [Unknown]
  - Neck pain [Unknown]
  - Arthralgia [Unknown]
  - Underdose [Unknown]
  - Erythema [Recovering/Resolving]
